FAERS Safety Report 8375304-0 (Version None)
Quarter: 2012Q2

REPORT INFORMATION
  Report Type: 
  Country: None (occurrence: None)
  Receive Date: 20120522
  Receipt Date: 20120516
  Transmission Date: 20120825
  Serious: No
  Sender: FDA-Public Use
  Company Number: US-BIOGENIDEC-2012BI011095

PATIENT
  Age: 39 Year
  Sex: Female

DRUGS (2)
  1. TYSABRI [Suspect]
     Indication: MULTIPLE SCLEROSIS
     Route: 042
     Dates: start: 20090219, end: 20090219
  2. TYSABRI [Suspect]
     Route: 042
     Dates: start: 20120116, end: 20120323

REACTIONS (7)
  - BLOOD PRESSURE INCREASED [None]
  - DYSPNOEA [None]
  - THROAT TIGHTNESS [None]
  - FATIGUE [None]
  - NAUSEA [None]
  - CHILLS [None]
  - HYPERSENSITIVITY [None]
